FAERS Safety Report 18637596 (Version 1)
Quarter: 2020Q4

REPORT INFORMATION
  Report Type: Spontaneous
  Country: BG (occurrence: BG)
  Receive Date: 20201218
  Receipt Date: 20201218
  Transmission Date: 20210114
  Serious: Yes (Other)
  Sender: FDA-Public Use
  Company Number: BG-MYLANLABS-2020M1102839

PATIENT
  Age: 63 Year
  Sex: Female

DRUGS (8)
  1. FLUOROURACIL. [Suspect]
     Active Substance: FLUOROURACIL
     Dosage: UNK (DOSE REDUCTION BY 25%)
     Route: 065
     Dates: start: 2020
  2. OXALIPLATIN. [Suspect]
     Active Substance: OXALIPLATIN
     Dosage: UNK (DOSE REDUCTION BY 25%)
     Route: 065
     Dates: start: 2020
  3. FOLINIC ACID [Suspect]
     Active Substance: LEUCOVORIN
     Indication: COLORECTAL CANCER
     Dosage: UNK
     Route: 065
     Dates: start: 20200715
  4. FLUOROURACIL. [Suspect]
     Active Substance: FLUOROURACIL
     Indication: COLORECTAL CANCER
     Dosage: UNK
     Route: 065
     Dates: start: 20200715
  5. FOLINIC ACID [Suspect]
     Active Substance: LEUCOVORIN
     Dosage: UNK (DOSE REDUCTION BY 25%)
     Route: 065
     Dates: start: 2020
  6. OXALIPLATIN. [Suspect]
     Active Substance: OXALIPLATIN
     Indication: COLORECTAL CANCER
     Dosage: UNK
     Route: 065
     Dates: start: 20200715
  7. VECTIBIX [Suspect]
     Active Substance: PANITUMUMAB
     Indication: COLORECTAL CANCER
     Dosage: 1 DOSAGE FORM, Q2W
     Route: 065
     Dates: start: 20200715
  8. VECTIBIX [Suspect]
     Active Substance: PANITUMUMAB
     Dosage: 1 DOSAGE FORM, Q2W (DOSE REDUCTION BY 25%)
     Route: 065
     Dates: start: 2020

REACTIONS (9)
  - Skin toxicity [Unknown]
  - Leukopenia [Recovered/Resolved]
  - Dysphagia [Unknown]
  - Rash papular [Unknown]
  - Pain [Unknown]
  - Neutropenia [Recovered/Resolved]
  - Rash pruritic [Recovered/Resolved]
  - Stomatitis [Unknown]
  - Mucosal inflammation [Unknown]

NARRATIVE: CASE EVENT DATE: 202008
